FAERS Safety Report 7260735-2 (Version None)
Quarter: 2011Q1

REPORT INFORMATION
  Report Type: 
  Country: None (occurrence: None)
  Receive Date: 20110130
  Receipt Date: 20101222
  Transmission Date: 20110831
  Serious: No
  Sender: FDA-Public Use
  Company Number: US-ABBOTT-10P-163-0693423-00

PATIENT
  Age: 45 Year
  Sex: Female

DRUGS (8)
  1. ZOLOFT [Concomitant]
     Indication: DEPRESSION
  2. HUMIRA [Suspect]
     Indication: CROHN'S DISEASE
     Dates: start: 20101001
  3. VENTOLIN [Concomitant]
     Indication: ASTHMA
  4. LYRICA [Concomitant]
     Indication: FIBROMYALGIA
  5. XANAX [Concomitant]
     Indication: DEPRESSION
  6. PHENERGAN [Concomitant]
     Indication: NAUSEA
  7. ALBUTEROL [Concomitant]
     Indication: ASTHMA
     Dosage: BREATHING TREATMENT PER NEBULIZER 2-3 TIMES A DAY
  8. OXYGEN [Concomitant]
     Indication: PRODUCT USED FOR UNKNOWN INDICATION
     Dosage: SLEEP

REACTIONS (6)
  - CYSTITIS [None]
  - BLOOD IRON DECREASED [None]
  - PRODUCTIVE COUGH [None]
  - DRUG DOSE OMISSION [None]
  - ORAL HERPES [None]
  - INJECTION SITE PAIN [None]
